FAERS Safety Report 7082910-2 (Version None)
Quarter: 2010Q4

REPORT INFORMATION
  Report Type: 
  Country: None (occurrence: None)
  Receive Date: 20101104
  Receipt Date: 20101029
  Transmission Date: 20110411
  Serious: Yes (Life-Threatening, Hospitalization, Other)
  Sender: FDA-Public Use
  Company Number: PHHY2008ZA27954

PATIENT
  Sex: Female
  Weight: 64 kg

DRUGS (1)
  1. VOLTAREN [Suspect]
     Dosage: 1 DF (100MG), THREE TIMES/ DAY
     Route: 067
     Dates: start: 20081030, end: 20091103

REACTIONS (8)
  - CAESAREAN SECTION [None]
  - DRUG DISPENSING ERROR [None]
  - DRUG EXPOSURE DURING PREGNANCY [None]
  - INCORRECT ROUTE OF DRUG ADMINISTRATION [None]
  - NORMAL NEWBORN [None]
  - PLACENTA PRAEVIA HAEMORRHAGE [None]
  - POST PROCEDURAL HAEMORRHAGE [None]
  - PREMATURE LABOUR [None]
